FAERS Safety Report 6741989-5 (Version None)
Quarter: 2010Q2

REPORT INFORMATION
  Report Type: 
  Country: None (occurrence: None)
  Receive Date: 20100520
  Receipt Date: 20091013
  Transmission Date: 20101027
  Serious: Yes (Other)
  Sender: FDA-Public Use
  Company Number: 2006152187

PATIENT
  Age: 32 Year
  Sex: Female

DRUGS (8)
  1. DEPO-PROVERA [Suspect]
     Indication: MENSTRUATION IRREGULAR
     Dosage: INTRAMUSCULAR
     Route: 030
     Dates: end: 20031101
  2. DEPO-PROVERA [Suspect]
     Indication: OFF LABEL USE
     Dosage: INTRAMUSCULAR
     Route: 030
     Dates: end: 20031101
  3. TRIAZOLAM [Concomitant]
  4. ZOLOFT [Concomitant]
  5. SYNTHROID [Concomitant]
  6. KLONOPIN [Concomitant]
  7. ATIVAN [Concomitant]
  8. KEPPRA [Concomitant]

REACTIONS (1)
  - OSTEOPOROSIS [None]
